FAERS Safety Report 8384460-X (Version None)
Quarter: 2012Q2

REPORT INFORMATION
  Report Type: 
  Country: None (occurrence: None)
  Receive Date: 20120524
  Receipt Date: 20120522
  Transmission Date: 20120825
  Serious: Yes (Hospitalization)
  Sender: FDA-Public Use
  Company Number: GB-GLAXOSMITHKLINE-B0802875A

PATIENT
  Age: 43 Year
  Sex: Female

DRUGS (4)
  1. DOVOBET [Concomitant]
     Indication: PSORIASIS
     Route: 061
  2. CURATODERM [Concomitant]
     Indication: PSORIASIS
     Route: 061
  3. EUMOVATE [Concomitant]
     Indication: PSORIASIS
     Route: 061
  4. ZYBAN [Suspect]
     Indication: SMOKING CESSATION THERAPY
     Dates: start: 20120501, end: 20120508

REACTIONS (2)
  - PUSTULAR PSORIASIS [None]
  - PSORIASIS [None]
